FAERS Safety Report 9672272 (Version 1)
Quarter: 2013Q4

REPORT INFORMATION
  Report Type: Spontaneous
  Country: SE (occurrence: SE)
  Receive Date: 20131106
  Receipt Date: 20131106
  Transmission Date: 20140711
  Serious: Yes (Hospitalization)
  Sender: FDA-Public Use
  Company Number: SE-ASTRAZENECA-2013SE79569

PATIENT
  Age: 65 Year
  Sex: Male

DRUGS (13)
  1. BRILIQUE [Suspect]
     Route: 048
     Dates: start: 20130920, end: 20130925
  2. TRADOLAN [Concomitant]
  3. OMEPRAZOL [Concomitant]
  4. METFORMIN [Concomitant]
  5. BISOPROLOL [Concomitant]
  6. ENALAPRIL [Concomitant]
  7. SIMVASTATIN [Concomitant]
  8. NITROLINGUAL [Concomitant]
  9. FURIX [Concomitant]
  10. TROMBYL [Concomitant]
  11. ALVEDON FORTE [Concomitant]
  12. MONOKET [Concomitant]
     Dosage: DAILY
     Route: 048
  13. NOVORAPID [Concomitant]

REACTIONS (1)
  - Cardiac failure [Unknown]
